FAERS Safety Report 6595309-X (Version None)
Quarter: 2010Q1

REPORT INFORMATION
  Report Type: 
  Country: None (occurrence: None)
  Receive Date: 20100219
  Receipt Date: 20100219
  Transmission Date: 20100710
  Serious: Yes (Other)
  Sender: FDA-Public Use
  Company Number: None

PATIENT
  Age: 43 Year
  Sex: Male

DRUGS (7)
  1. LINEZOLID [Suspect]
     Indication: STAPHYLOCOCCAL INFECTION
     Dosage: 600 MG Q12H IV DRIP
     Route: 041
     Dates: start: 20091005, end: 20091008
  2. ALBUTEROL [Concomitant]
  3. ESOMEPRAZOLE MAGNESIUM [Concomitant]
  4. LEVETIRACETAM [Concomitant]
  5. ACETAMINOPHEN [Concomitant]
  6. VANCOMYCIN [Concomitant]
  7. ZOSYN [Concomitant]

REACTIONS (3)
  - BLISTER [None]
  - ERYTHEMA [None]
  - STEVENS-JOHNSON SYNDROME [None]
